FAERS Safety Report 19866443 (Version 2)
Quarter: 2021Q4

REPORT INFORMATION
  Report Type: Other
  Country: US (occurrence: US)
  Receive Date: 20210922
  Receipt Date: 20211123
  Transmission Date: 20220303
  Serious: Yes (Hospitalization)
  Sender: FDA-Public Use
  Company Number: US-INTERCEPT-PM2021002599

PATIENT
  Age: 77 Year
  Sex: Male

DRUGS (16)
  1. OCALIVA [Suspect]
     Active Substance: OBETICHOLIC ACID
     Indication: Primary biliary cholangitis
     Dosage: 5 MILLIGRAM, QD
     Route: 048
     Dates: start: 20210817, end: 20210920
  2. OCALIVA [Suspect]
     Active Substance: OBETICHOLIC ACID
     Dosage: 10 MILLIGRAM, QD
     Route: 048
     Dates: start: 20211006
  3. ACTIGALL [Concomitant]
     Active Substance: URSODIOL
     Dosage: 600 MILLIGRAM, BID (EVERY 12 HOURS)
     Route: 048
  4. TIMOPTIC [Concomitant]
     Active Substance: TIMOLOL MALEATE
     Dosage: 1 GTT DROPS, QD, RIGHT EYE
     Route: 047
  5. FLOMAX [Concomitant]
     Active Substance: TAMSULOSIN HYDROCHLORIDE
     Indication: Benign prostatic hyperplasia
     Dosage: 0.4 MILLIGRAM, QD (TAKE ABOUT 30 MINUTES AFTER MEAL)
     Route: 048
  6. OMEPRAZOLE [Concomitant]
     Active Substance: OMEPRAZOLE
     Indication: Gastric ulcer
     Dosage: 20 MILLIGRAM, BID
     Route: 048
  7. OCUVITE PRESERVISION [ASCORBIC ACID;CUPRIC OXIDE;RETINOL;VITAMIN E NOS [Concomitant]
     Indication: Visual impairment
     Dosage: 1 DOSAGE FORM, BID
     Route: 048
  8. XALATAN [Concomitant]
     Active Substance: LATANOPROST
     Dosage: 1 GTT DROPS, QD, RIGHT EYE
     Route: 047
  9. ATARAX [Concomitant]
     Active Substance: HYDROXYZINE HYDROCHLORIDE
     Indication: Anxiety
     Dosage: 50 MILLIGRAM, Q6H
     Route: 048
  10. FLEXOPLEX [Concomitant]
     Dosage: 600/750/697MG, BID
     Route: 048
  11. PROSCAR [Concomitant]
     Active Substance: FINASTERIDE
     Indication: Benign prostatic hyperplasia
     Dosage: 5 MILLIGRAM, QD (EVERY EVENING)
     Route: 048
  12. PROSCAR [Concomitant]
     Active Substance: FINASTERIDE
     Indication: Lower urinary tract symptoms
  13. LEXAPRO [Concomitant]
     Active Substance: ESCITALOPRAM OXALATE
     Indication: Depression
     Dosage: 5 MILLIGRAM, QD (EVERY EVENING)
     Route: 048
  14. LEXAPRO [Concomitant]
     Active Substance: ESCITALOPRAM OXALATE
     Indication: Anxiety
  15. DOCUSATE SODIUM [Concomitant]
     Active Substance: DOCUSATE SODIUM
     Dosage: 250 MG, QD, AS NEEDED
     Route: 048
  16. PRAVACHOL [Concomitant]
     Active Substance: PRAVASTATIN SODIUM
     Indication: Dyslipidaemia
     Dosage: 40 MILLIGRAM, QD (EVERY EVENING)
     Route: 048
     Dates: end: 20210904

REACTIONS (3)
  - Ischaemic stroke [Unknown]
  - Emphysema [Unknown]
  - Fall [Unknown]

NARRATIVE: CASE EVENT DATE: 20210903
